FAERS Safety Report 6686645-7 (Version None)
Quarter: 2010Q2

REPORT INFORMATION
  Report Type: 
  Country: None (occurrence: None)
  Receive Date: 20100419
  Receipt Date: 20100405
  Transmission Date: 20101027
  Serious: Yes (Hospitalization, Other)
  Sender: FDA-Public Use
  Company Number: US-ELI_LILLY_AND_COMPANY-US201004002765

PATIENT
  Sex: Female

DRUGS (8)
  1. FORTEO [Suspect]
     Indication: OSTEOPOROSIS
     Dosage: 20 UG, DAILY (1/D)
     Dates: start: 20090901, end: 20091001
  2. BENICAR HCT [Concomitant]
     Dosage: UNK, DAILY (1/D)
  3. TOPROL-XL                          /00376903/ [Concomitant]
     Dosage: 25 MG, DAILY (1/D)
  4. NORVASC [Concomitant]
     Dosage: 10 MG, DAILY (1/D)
  5. PLAVIX [Concomitant]
     Dosage: 75 MG, DAILY (1/D)
  6. ASPIRIN [Concomitant]
     Dosage: 325 MG, DAILY (1/D)
  7. TAMOXIFEN CITRATE [Concomitant]
     Dosage: 20 MG, DAILY (1/D)
  8. MEGACE ES [Concomitant]
     Dosage: 5 ML, DAILY (1/D)

REACTIONS (2)
  - ANGINA PECTORIS [None]
  - CORONARY ARTERY OCCLUSION [None]
